FAERS Safety Report 15489241 (Version 1)
Quarter: 2018Q4

REPORT INFORMATION
  Report Type: Report from Study
  Country: BE (occurrence: BE)
  Receive Date: 20181011
  Receipt Date: 20181011
  Transmission Date: 20190205
  Serious: Yes (Death)
  Sender: FDA-Public Use
  Company Number: BE-MYLANLABS-2018M1072846

PATIENT
  Sex: Female

DRUGS (3)
  1. BEVACIZUMAB. [Suspect]
     Active Substance: BEVACIZUMAB
     Indication: BREAST CANCER
     Dosage: 10 MG/KG, ON DAYS 1 AND 15
     Route: 042
  2. PICTRELISIB [Suspect]
     Active Substance: PICTILISIB
     Indication: BREAST CANCER
     Dosage: 60 MG, DAILY ON DAYS 1-21
     Route: 048
  3. PACLITAXEL. [Suspect]
     Active Substance: PACLITAXEL
     Indication: BREAST CANCER
     Dosage: 90 MG/M2, ON DAYS 1, 8 AND 15
     Route: 042

REACTIONS (1)
  - Left ventricular dysfunction [Fatal]
